FAERS Safety Report 12632668 (Version 2)
Quarter: 2016Q3

REPORT INFORMATION
  Report Type: Spontaneous
  Country: US (occurrence: US)
  Receive Date: 20160808
  Receipt Date: 20160808
  Transmission Date: 20161109
  Serious: No
  Sender: FDA-Public Use
  Company Number: US-BEH-2015056480

PATIENT
  Sex: Male
  Weight: 11 kg

DRUGS (10)
  1. ACETAMINOPHEN. [Concomitant]
     Active Substance: ACETAMINOPHEN
  2. DIPHENHYDRAMINE. [Concomitant]
     Active Substance: DIPHENHYDRAMINE
  3. PROBIOTIC [Concomitant]
     Active Substance: PROBIOTICS NOS
  4. VITAMIN D3 [Concomitant]
     Active Substance: CHOLECALCIFEROL
  5. GENOTROPIN [Concomitant]
     Active Substance: SOMATROPIN
  6. MUPIROCIN. [Concomitant]
     Active Substance: MUPIROCIN
  7. KEFLEX [Concomitant]
     Active Substance: CEPHALEXIN
  8. EPIPEN [Concomitant]
     Active Substance: EPINEPHRINE
  9. L-M-X [Concomitant]
  10. HIZENTRA [Suspect]
     Active Substance: HUMAN IMMUNOGLOBULIN G
     Indication: SELECTIVE IGG SUBCLASS DEFICIENCY
     Route: 058

REACTIONS (1)
  - Sinusitis [Unknown]
